FAERS Safety Report 7142397-8 (Version None)
Quarter: 2010Q4

REPORT INFORMATION
  Report Type: 
  Country: None (occurrence: None)
  Receive Date: 20101207
  Receipt Date: 20101129
  Transmission Date: 20110411
  Serious: Yes (Other)
  Sender: FDA-Public Use
  Company Number: US-PFIZER INC-2010159753

PATIENT
  Sex: Female

DRUGS (2)
  1. EFFEXOR [Suspect]
     Dosage: 150 MG, UNK
  2. VENLAFAXINE HCL [Suspect]
     Dosage: UNK

REACTIONS (1)
  - SUICIDAL IDEATION [None]
